FAERS Safety Report 22371664 (Version 4)
Quarter: 2025Q2

REPORT INFORMATION
  Report Type: Spontaneous
  Country: US (occurrence: None)
  Receive Date: 20230526
  Receipt Date: 20250527
  Transmission Date: 20250716
  Serious: Yes (Hospitalization, Disabling, Other)
  Sender: INCYTE
  Company Number: US-INCYTE CORPORATION-2023IN005068

PATIENT
  Age: 81 Year

DRUGS (3)
  1. JAKAFI [Suspect]
     Active Substance: RUXOLITINIB
     Indication: Polycythaemia vera
     Dosage: 5 MILLIGRAM, BID
  2. JAKAFI [Suspect]
     Active Substance: RUXOLITINIB
     Indication: Graft versus host disease
     Dosage: 5 MILLIGRAM, BID
  3. JAKAFI [Suspect]
     Active Substance: RUXOLITINIB
     Dosage: 5 MILLIGRAM, BID

REACTIONS (9)
  - Aortic valve disease [Unknown]
  - Atrial fibrillation [Unknown]
  - Mobility decreased [Unknown]
  - Pleural effusion [Unknown]
  - Haemorrhage [Unknown]
  - Limb discomfort [Unknown]
  - Balance disorder [Unknown]
  - Back pain [Unknown]
  - Constipation [Unknown]
